FAERS Safety Report 13141741 (Version 1)
Quarter: 2017Q1

REPORT INFORMATION
  Report Type: Spontaneous
  Country: PR (occurrence: PR)
  Receive Date: 20170124
  Receipt Date: 20170124
  Transmission Date: 20170428
  Serious: No
  Sender: FDA-Public Use
  Company Number: PR-ABBVIE-16P-131-1552126-00

PATIENT
  Sex: Male

DRUGS (4)
  1. HUMIRA [Suspect]
     Active Substance: ADALIMUMAB
     Route: 058
  2. HUMIRA [Suspect]
     Active Substance: ADALIMUMAB
     Indication: PRODUCT USED FOR UNKNOWN INDICATION
     Route: 058
  3. PANADOL [Concomitant]
     Active Substance: ACETAMINOPHEN
     Indication: PAIN
  4. PANADOL [Concomitant]
     Active Substance: ACETAMINOPHEN
     Indication: BACK PAIN

REACTIONS (4)
  - Dengue fever [Unknown]
  - Pain [Not Recovered/Not Resolved]
  - Influenza [Unknown]
  - Back pain [Not Recovered/Not Resolved]
